FAERS Safety Report 5160185-9 (Version None)
Quarter: 2006Q4

REPORT INFORMATION
  Report Type: 
  Country: None (occurrence: None)
  Receive Date: 20061120
  Receipt Date: 20061101
  Transmission Date: 20070319
  Serious: Yes (Hospitalization, Other)
  Sender: FDA-Public Use
  Company Number: US-2006-017256

PATIENT
  Age: 62 Year
  Sex: Female
  Weight: 86 kg

DRUGS (11)
  1. BETASERON [Suspect]
     Indication: RELAPSING-REMITTING MULTIPLE SCLEROSIS
     Dosage: 8 MIU, EVERY 2D, SUBCUTANEOUS
     Route: 058
     Dates: start: 20021016, end: 20050201
  2. BETASERON [Suspect]
     Indication: RELAPSING-REMITTING MULTIPLE SCLEROSIS
     Dosage: 8 MIU, EVERY 2D, SUBCUTANEOUS
     Route: 058
     Dates: start: 20050101
  3. GLUCOPHAGE [Suspect]
     Dosage: 500 MG, 2X/DAY, ORAL
     Route: 048
  4. ZOCOR [Suspect]
     Dosage: 20 MG, 1X/DAY, ORAL
     Route: 048
  5. BACLOFEN [Concomitant]
  6. LISINOPRIL [Concomitant]
  7. PAXIL [Concomitant]
  8. GLIPIZIDE [Concomitant]
  9. AVANDIA [Concomitant]
  10. NITROFURANTOIN [Concomitant]
  11. ZOLOFT [Concomitant]

REACTIONS (35)
  - ABDOMINAL WALL CYST [None]
  - ASTHENIA [None]
  - B-CELL LYMPHOMA [None]
  - BACK PAIN [None]
  - BILIARY TRACT INFECTION [None]
  - BILOMA [None]
  - BLOOD GLUCOSE INCREASED [None]
  - BLOOD PRESSURE INCREASED [None]
  - BREAST MICROCALCIFICATION [None]
  - CATHETER BACTERAEMIA [None]
  - CHEST PAIN [None]
  - CONVULSION [None]
  - DIABETES MELLITUS NON-INSULIN-DEPENDENT [None]
  - DIARRHOEA [None]
  - DISTURBANCE IN ATTENTION [None]
  - EAR PAIN [None]
  - EAR PRURITUS [None]
  - EJECTION FRACTION DECREASED [None]
  - FALL [None]
  - HEPATIC CYST [None]
  - HEPATIC STEATOSIS [None]
  - HYPERLIPIDAEMIA [None]
  - HYPERTENSION [None]
  - INFLAMMATION [None]
  - LIVER DISORDER [None]
  - MASS [None]
  - MOBILITY DECREASED [None]
  - MUSCLE SPASTICITY [None]
  - PANCREATIC CARCINOMA [None]
  - SKELETAL INJURY [None]
  - SUBCUTANEOUS ABSCESS [None]
  - SUBCUTANEOUS NODULE [None]
  - URINARY TRACT DISORDER [None]
  - VENTRICULAR HYPOKINESIA [None]
  - WEIGHT DECREASED [None]
